FAERS Safety Report 9878686 (Version 2)
Quarter: 2014Q1

REPORT INFORMATION
  Report Type: Spontaneous
  Country: US (occurrence: US)
  Receive Date: 20140206
  Receipt Date: 20140206
  Transmission Date: 20141002
  Serious: No
  Sender: FDA-Public Use
  Company Number: US-ALLERGAN-1309078US

PATIENT
  Age: 31 Year
  Sex: Female

DRUGS (2)
  1. BOTOX COSMETIC [Suspect]
     Indication: SKIN WRINKLING
     Dosage: UNK, SINGLE
     Dates: start: 20130617, end: 20130617
  2. BOTOX COSMETIC [Suspect]
     Indication: SKIN WRINKLING
     Dosage: UNK

REACTIONS (4)
  - Headache [Recovered/Resolved]
  - Injection site swelling [Unknown]
  - Injection site pain [Recovered/Resolved]
  - Drug ineffective [Unknown]
